FAERS Safety Report 5754375-1 (Version None)
Quarter: 2008Q2

REPORT INFORMATION
  Report Type: 
  Country: None (occurrence: None)
  Receive Date: 20080530
  Receipt Date: 20080522
  Transmission Date: 20081010
  Serious: Yes (Other)
  Sender: FDA-Public Use
  Company Number: AU-ABBOTT-08P-008-0453049-00

PATIENT
  Sex: Male
  Weight: 83 kg

DRUGS (6)
  1. E.E.S. [Suspect]
     Indication: COUGH
     Dosage: DAILY
     Dates: start: 20070925, end: 20071015
  2. SIMVASTATIN [Interacting]
     Indication: MYOCARDIAL ISCHAEMIA
     Dosage: DAILY
     Route: 048
     Dates: end: 20071018
  3. NEO-B12 [Concomitant]
     Indication: DRUG USE FOR UNKNOWN INDICATION
  4. AMLODIPINE [Concomitant]
     Indication: DRUG USE FOR UNKNOWN INDICATION
  5. ACETAMINOPHEN [Concomitant]
     Indication: DRUG USE FOR UNKNOWN INDICATION
  6. WARFARIN SODIUM [Concomitant]
     Indication: DRUG USE FOR UNKNOWN INDICATION

REACTIONS (7)
  - BLOOD CREATINE PHOSPHOKINASE INCREASED [None]
  - DRUG INTERACTION [None]
  - HYPERHIDROSIS [None]
  - LIVER FUNCTION TEST ABNORMAL [None]
  - MUSCULOSKELETAL STIFFNESS [None]
  - PYREXIA [None]
  - RHABDOMYOLYSIS [None]
